FAERS Safety Report 12852053 (Version 1)
Quarter: 2016Q4

REPORT INFORMATION
  Report Type: Spontaneous
  Country: US (occurrence: US)
  Receive Date: 20161014
  Receipt Date: 20161014
  Transmission Date: 20170207
  Serious: No
  Sender: FDA-Public Use
  Company Number: None

PATIENT
  Age: 39 Year
  Sex: Male
  Weight: 91.63 kg

DRUGS (1)
  1. MORPHINE ER 15MG [Suspect]
     Active Substance: MORPHINE
     Indication: HAEMARTHROSIS
     Dosage: 30 PER  30 DAYS
     Route: 048
     Dates: start: 201606, end: 201608

REACTIONS (2)
  - Somnolence [None]
  - Insomnia [None]

NARRATIVE: CASE EVENT DATE: 20160831
